FAERS Safety Report 14092577 (Version 3)
Quarter: 2017Q4

REPORT INFORMATION
  Report Type: Report from Study
  Country: US (occurrence: US)
  Receive Date: 20171016
  Receipt Date: 20171222
  Transmission Date: 20180321
  Serious: Yes (Other)
  Sender: FDA-Public Use
  Company Number: US-PFIZER INC-2014197285

PATIENT
  Age: 64 Year
  Sex: Female
  Weight: 75.14 kg

DRUGS (39)
  1. DOCUSATE [Concomitant]
     Active Substance: DOCUSATE
     Indication: CONSTIPATION
     Dosage: 100 MG, 2X/DAY
     Route: 048
     Dates: start: 20140630, end: 20140703
  2. ATIVAN [Concomitant]
     Active Substance: LORAZEPAM
     Indication: INSOMNIA
     Dosage: 1 MG, AT BEDTIME FOR SLEEP AS NEEDED
     Route: 042
     Dates: start: 20140623
  3. ATIVAN [Concomitant]
     Active Substance: LORAZEPAM
     Dosage: 0.5 MG, 1 DOSE INJ
     Dates: start: 20140718, end: 20140718
  4. CHOLECALCIFEROL [Concomitant]
     Active Substance: CHOLECALCIFEROL
     Indication: HYPOVITAMINOSIS
     Dosage: 400 IU, EVERY 12 HOURS
     Route: 048
     Dates: start: 20140628
  5. ONDANSETRON [Concomitant]
     Active Substance: ONDANSETRON
     Indication: VOMITING
  6. SEVELAMER [Concomitant]
     Active Substance: SEVELAMER
     Indication: PROPHYLAXIS
     Dosage: 800 MG, 1X/DAY
     Route: 048
     Dates: start: 20140624, end: 20140705
  7. DAUNORUBICIN [Suspect]
     Active Substance: DAUNORUBICIN
     Indication: ACUTE MYELOID LEUKAEMIA
     Dosage: 111 MG, ONCE DAILY ON DAYS 1-3
     Route: 040
     Dates: start: 20140627, end: 20140629
  8. OXYCODONE [Concomitant]
     Active Substance: OXYCODONE
     Indication: PAIN
  9. OXYCODONE [Concomitant]
     Active Substance: OXYCODONE
     Indication: BACK PAIN
  10. ATIVAN [Concomitant]
     Active Substance: LORAZEPAM
     Dosage: 0.5 MG, AS NEEDED
     Dates: start: 20140729
  11. ALLOPURINOL. [Concomitant]
     Active Substance: ALLOPURINOL
     Indication: PROPHYLAXIS
     Dosage: 300 MG, DAILY
     Route: 048
     Dates: start: 20140628, end: 20140704
  12. LACTULOSE. [Concomitant]
     Active Substance: LACTULOSE
     Indication: CONSTIPATION
     Dosage: 30 MG, Q2HR X 2 DOSES
     Route: 048
     Dates: start: 20140702, end: 20140702
  13. ATIVAN [Concomitant]
     Active Substance: LORAZEPAM
     Indication: ANXIETY
     Dosage: 0.5 MG, 1 DOSE INJ
     Dates: start: 20140702, end: 20140702
  14. PF-04449913 [Suspect]
     Active Substance: GLASDEGIB
     Indication: ACUTE MYELOID LEUKAEMIA
     Dosage: 100 MG, ONCE DAILY CONTINUOUS
     Route: 048
     Dates: start: 20140624
  15. MEROPENEM. [Suspect]
     Active Substance: MEROPENEM
     Indication: DUODENITIS
  16. CYTARABINE. [Suspect]
     Active Substance: CYTARABINE
     Indication: ACUTE MYELOID LEUKAEMIA
     Dosage: 190 MG, CONTINUOS INFUSION ON DAYS 1-7
     Route: 042
     Dates: start: 20140627, end: 20140704
  17. LASIX [Concomitant]
     Active Substance: FUROSEMIDE
     Indication: BLOOD PRESSURE INCREASED
  18. MORPHINE [Concomitant]
     Active Substance: MORPHINE
     Indication: CHILLS
     Dosage: 1 MG, ONCE
     Route: 042
     Dates: start: 20140702, end: 20140702
  19. VANCOMYCIN [Concomitant]
     Active Substance: VANCOMYCIN
     Dosage: 1000 MG, Q12H
     Route: 042
     Dates: start: 20140710, end: 20140727
  20. MICAFUNGIN [Concomitant]
     Active Substance: MICAFUNGIN
     Indication: PROPHYLAXIS
     Dosage: 100 MG, DAILY
     Route: 042
     Dates: start: 20140701, end: 20140727
  21. ACETAMINOPHEN. [Concomitant]
     Active Substance: ACETAMINOPHEN
     Indication: PYREXIA
     Dosage: 650 MG, ONCE
     Route: 048
     Dates: start: 20140702, end: 20140702
  22. CAPTOPRIL. [Concomitant]
     Active Substance: CAPTOPRIL
     Indication: HYPERTENSION
     Dosage: 12.5 MG, 3X/DAY
     Route: 048
     Dates: start: 20140627, end: 20140712
  23. LASIX [Concomitant]
     Active Substance: FUROSEMIDE
     Indication: OEDEMA
     Dosage: 20 MG, INTEMITTENT X 1 DOSE
     Route: 042
     Dates: start: 20140710, end: 20140710
  24. PANTOPRAZOLE [Concomitant]
     Active Substance: PANTOPRAZOLE
     Indication: PROPHYLAXIS
     Dosage: 40 MG, DAILY
     Route: 048
     Dates: start: 20140624, end: 20140712
  25. PIPERACILLIN [Concomitant]
     Active Substance: PIPERACILLIN
     Indication: PROPHYLAXIS
     Dosage: 3.375 G, EVERY 4 HRS
     Route: 042
     Dates: start: 20140702
  26. SENNA [Concomitant]
     Active Substance: SENNA LEAF\SENNOSIDES\SENNOSIDES A AND B
     Indication: CONSTIPATION
     Dosage: 187 MG, QHR
     Route: 048
     Dates: start: 20140630, end: 20140704
  27. ZOSYN [Concomitant]
     Active Substance: PIPERACILLIN SODIUM\TAZOBACTAM SODIUM
     Dosage: 3.375 G, Q4H
     Route: 042
     Dates: start: 20140710, end: 20140712
  28. LASIX [Concomitant]
     Active Substance: FUROSEMIDE
     Indication: DIURETIC THERAPY
     Dosage: 20 MG, Q24HR FOR 0.5 KG ABOVE GOAL
     Route: 042
     Dates: start: 20140627, end: 20140712
  29. MOXIFLOXACIN. [Concomitant]
     Active Substance: MOXIFLOXACIN
     Indication: PROPHYLAXIS
     Dosage: 400 MG, DAILY
     Route: 048
     Dates: start: 20140624, end: 20140702
  30. MIRALAX [Concomitant]
     Active Substance: POLYETHYLENE GLYCOL 3350
     Indication: CONSTIPATION
     Dosage: 17 G, DAILY
     Route: 048
     Dates: start: 20140628, end: 20140702
  31. KCL [Concomitant]
     Active Substance: POTASSIUM CHLORIDE
     Indication: HYPOKALAEMIC SYNDROME
     Dosage: 40 MBQ, Q4HR PRN
     Route: 042
     Dates: start: 20140705, end: 20140709
  32. VALTREX [Concomitant]
     Active Substance: VALACYCLOVIR HYDROCHLORIDE
     Indication: PROPHYLAXIS
     Dosage: 500 MG, EVERY 12 HOURS
     Route: 048
     Dates: start: 20140624, end: 20140828
  33. VANCOMYCIN [Concomitant]
     Active Substance: VANCOMYCIN
     Indication: PROPHYLAXIS
     Dosage: 1250 MG, EVERY 12 HOURS
     Route: 042
     Dates: start: 20140702, end: 20140703
  34. ATIVAN [Concomitant]
     Active Substance: LORAZEPAM
     Dosage: 0.5 MG, 13 DOSES, INJ
     Dates: start: 20140719, end: 20140723
  35. MEROPENEM. [Suspect]
     Active Substance: MEROPENEM
     Indication: PROPHYLAXIS
     Dosage: 1 G, EVERY 8 HOURS
     Route: 042
     Dates: start: 20140712, end: 20140729
  36. LOPERAMIDE [Concomitant]
     Active Substance: LOPERAMIDE
     Indication: DIARRHOEA
     Dosage: 2 MG, EVERY 6 HOURS AS NEEDED
     Route: 048
     Dates: start: 20140707, end: 20140712
  37. ONDANSETRON [Concomitant]
     Active Substance: ONDANSETRON
     Indication: NAUSEA
     Dosage: 8 MG, EVERY 12 HOURS
     Route: 042
     Dates: start: 20140627, end: 20140704
  38. OXYCODONE [Concomitant]
     Active Substance: OXYCODONE
     Indication: BACK PAIN
     Dosage: 5 MG, Q4HR PRN TAKEN INTERMITTENTLY
     Route: 048
     Dates: start: 20140709
  39. ATIVAN [Concomitant]
     Active Substance: LORAZEPAM
     Indication: SEDATION
     Dosage: 1 MG, 1 DOSE INJ
     Dates: start: 20140714, end: 20140714

REACTIONS (3)
  - Upper gastrointestinal haemorrhage [Recovered/Resolved]
  - Presyncope [Recovered/Resolved]
  - Dyskinesia [Recovered/Resolved]

NARRATIVE: CASE EVENT DATE: 20140712
